FAERS Safety Report 9393080 (Version 1)
Quarter: 2013Q3

REPORT INFORMATION
  Report Type: Spontaneous
  Country: US (occurrence: US)
  Receive Date: 20130710
  Receipt Date: 20130710
  Transmission Date: 20140515
  Serious: Yes (Other)
  Sender: FDA-Public Use
  Company Number: US-SANOFI-AVENTIS-2013SA069156

PATIENT
  Sex: 0

DRUGS (1)
  1. ALLEGRA [Suspect]
     Indication: ANAPHYLACTIC REACTION
     Dosage: 2 ALLERGA PER DAY
     Route: 065

REACTIONS (2)
  - Anaphylactic reaction [Unknown]
  - Hypersensitivity [Unknown]
